FAERS Safety Report 7275607-7 (Version None)
Quarter: 2011Q1

REPORT INFORMATION
  Report Type: 
  Country: None (occurrence: None)
  Receive Date: 20110204
  Receipt Date: 20110128
  Transmission Date: 20110831
  Serious: Yes (Other)
  Sender: FDA-Public Use
  Company Number: US-US-EMD SERONO, INC.-7039118

PATIENT
  Sex: Female

DRUGS (2)
  1. NUMEROUS UNSPECIFIED MEDICATIONS [Concomitant]
  2. REBIF [Suspect]
     Indication: PRODUCT USED FOR UNKNOWN INDICATION
     Route: 058
     Dates: start: 20090501

REACTIONS (2)
  - INTRACRANIAL ANEURYSM [None]
  - INJECTION SITE ERYTHEMA [None]
